FAERS Safety Report 15555878 (Version 1)
Quarter: 2018Q4

REPORT INFORMATION
  Report Type: Spontaneous
  Country: US (occurrence: US)
  Receive Date: 20181023
  Receipt Date: 20181023
  Transmission Date: 20190205
  Serious: Yes (Hospitalization)
  Sender: FDA-Public Use
  Company Number: None

PATIENT
  Age: 16 Year
  Sex: Female

DRUGS (16)
  1. COLISTIMETHATE [Concomitant]
     Active Substance: COLISTIMETHATE SODIUM
  2. DULERA [Concomitant]
     Active Substance: FORMOTEROL FUMARATE DIHYDRATE\MOMETASONE FUROATE
  3. MONTELUKAST [Concomitant]
     Active Substance: MONTELUKAST SODIUM
  4. STERILE WATER [Concomitant]
     Active Substance: WATER
  5. VITAMIN D3 [Concomitant]
     Active Substance: CHOLECALCIFEROL
  6. TOBRAMYCIN  300MG/5ML [Suspect]
     Active Substance: TOBRAMYCIN
     Route: 055
     Dates: start: 20180502
  7. CETIRIZINE [Concomitant]
     Active Substance: CETIRIZINE HYDROCHLORIDE
  8. METOCLOPRAMIDE. [Concomitant]
     Active Substance: METOCLOPRAMIDE
  9. VITAMIN A [Concomitant]
     Active Substance: VITAMIN A
  10. NOVOLIN N [Concomitant]
     Active Substance: INSULIN HUMAN
  11. RANITIDINE. [Concomitant]
     Active Substance: RANITIDINE
  12. URSODIOL. [Concomitant]
     Active Substance: URSODIOL
  13. ALBUTEROL. [Concomitant]
     Active Substance: ALBUTEROL
  14. PULMOZYME [Concomitant]
     Active Substance: DORNASE ALFA
  15. PERTZYE [Suspect]
     Active Substance: PANCRELIPASE AMYLASE\PANCRELIPASE LIPASE\PANCRELIPASE PROTEASE
     Indication: CYSTIC FIBROSIS
     Dosage: 4 CAPS W/ MEALS + SNACKS?PRE/POST G TUBE FEEDS BY MOUTH
     Route: 048
     Dates: start: 20180502
  16. SOD. CHLORIDE [Concomitant]

REACTIONS (1)
  - Infective pulmonary exacerbation of cystic fibrosis [None]

NARRATIVE: CASE EVENT DATE: 2018
